FAERS Safety Report 20606341 (Version 1)
Quarter: 2022Q1

REPORT INFORMATION
  Report Type: Spontaneous
  Country: US (occurrence: None)
  Receive Date: 20220316
  Receipt Date: 20220316
  Transmission Date: 20220423
  Serious: No
  Sender: FDA-Public Use
  Company Number: None

PATIENT
  Age: 71 Year
  Sex: Female

DRUGS (1)
  1. DEVICE [Suspect]
     Active Substance: DEVICE

REACTIONS (2)
  - Product quality issue [None]
  - Device issue [None]

NARRATIVE: CASE EVENT DATE: 20220216
